FAERS Safety Report 25387583 (Version 1)
Quarter: 2025Q2

REPORT INFORMATION
  Report Type: Report from Study
  Country: MX (occurrence: MX)
  Receive Date: 20250603
  Receipt Date: 20250603
  Transmission Date: 20250717
  Serious: Yes (Death, Other)
  Sender: ABBVIE
  Company Number: MX-ABBVIE-6308298

PATIENT
  Age: 71 Year
  Sex: Female

DRUGS (1)
  1. VENCLEXTA [Suspect]
     Active Substance: VENETOCLAX
     Indication: Chronic lymphocytic leukaemia
     Route: 048

REACTIONS (12)
  - Cardio-respiratory arrest [Fatal]
  - Syncope [Not Recovered/Not Resolved]
  - Fatigue [Not Recovered/Not Resolved]
  - Vomiting [Unknown]
  - Decreased appetite [Not Recovered/Not Resolved]
  - Urinary retention [Not Recovered/Not Resolved]
  - Constipation [Not Recovered/Not Resolved]
  - Delirium [Unknown]
  - Feeding disorder [Unknown]
  - Dyschezia [Unknown]
  - Abdominal distension [Unknown]
  - Loss of consciousness [Unknown]

NARRATIVE: CASE EVENT DATE: 20250501
